FAERS Safety Report 9471697 (Version 3)
Quarter: 2013Q4

REPORT INFORMATION
  Report Type: Spontaneous
  Country: IT (occurrence: IT)
  Receive Date: 20130822
  Receipt Date: 20131014
  Transmission Date: 20140711
  Serious: Yes (Hospitalization)
  Sender: FDA-Public Use
  Company Number: PHHY2013IT058232

PATIENT
  Sex: Male

DRUGS (4)
  1. GEMCITABINE [Suspect]
     Indication: PANCREATIC CARCINOMA
     Dosage: 1900 MG, CYCLIC DOSE
     Dates: start: 20130101, end: 20130429
  2. LEVOFLOXACIN [Suspect]
     Indication: INFECTION
     Dosage: 500 MG, QD
     Route: 048
     Dates: start: 20130501, end: 20130507
  3. LEVOFLOXACIN [Suspect]
     Indication: PYREXIA
  4. LEVOFLOXACIN [Suspect]
     Indication: COUGH

REACTIONS (3)
  - Pleural effusion [Recovering/Resolving]
  - Oedema [Recovering/Resolving]
  - Renal failure [Recovering/Resolving]
